FAERS Safety Report 4363614-3 (Version None)
Quarter: 2004Q2

REPORT INFORMATION
  Report Type: 
  Country: None (occurrence: None)
  Receive Date: 20040524
  Receipt Date: 20040524
  Transmission Date: 20050107
  Serious: Yes (Hospitalization)
  Sender: FDA-Public Use
  Company Number: None

PATIENT
  Age: 71 Year
  Sex: Male

DRUGS (10)
  1. HEPARIN [Suspect]
     Indication: CORONARY ARTERY SURGERY
     Dosage: INTRAVENOUS
     Route: 042
     Dates: start: 20040220, end: 20040220
  2. WARFARIN SODIUM [Suspect]
     Indication: ATRIAL FIBRILLATION
     Dosage: 3MG DAILY ORAL
     Route: 048
     Dates: start: 20040221, end: 20040311
  3. ASPIRIN [Concomitant]
  4. ALPHAGAN [Concomitant]
  5. XALATAN [Concomitant]
  6. TIMOLOL MALEATE [Concomitant]
  7. POTASSIUM CHLORIDE [Concomitant]
  8. FUROSEMIDE [Concomitant]
  9. LISINOPRIL [Concomitant]
  10. AMIODARONE HCL [Concomitant]

REACTIONS (6)
  - BLUE TOE SYNDROME [None]
  - DRUG HYPERSENSITIVITY [None]
  - GANGRENE [None]
  - NECROSIS [None]
  - SKIN DISCOLOURATION [None]
  - STAPHYLOCOCCAL INFECTION [None]
